FAERS Safety Report 20613934 (Version 2)
Quarter: 2022Q1

REPORT INFORMATION
  Report Type: Report from Study
  Country: US (occurrence: US)
  Receive Date: 20220319
  Receipt Date: 20220324
  Transmission Date: 20220423
  Serious: No
  Sender: FDA-Public Use
  Company Number: US-NOVARTISTESTPH-NVSC2022US063024

PATIENT
  Age: 66 Year
  Sex: Male

DRUGS (4)
  1. DEXAMETHASONE [Suspect]
     Active Substance: DEXAMETHASONE
     Indication: Product used for unknown indication
     Dosage: UNK
     Route: 065
  2. RITUXIMAB [Concomitant]
     Active Substance: RITUXIMAB
     Indication: Product used for unknown indication
     Dosage: UNK
     Route: 065
  3. VELTUZUMAB [Concomitant]
     Active Substance: VELTUZUMAB
     Indication: Product used for unknown indication
     Dosage: UNK
     Route: 065
  4. OFATUMUMAB [Concomitant]
     Active Substance: OFATUMUMAB
     Indication: Product used for unknown indication
     Dosage: UNK
     Route: 065

REACTIONS (8)
  - Fatigue [Unknown]
  - Cognitive disorder [Unknown]
  - Initial insomnia [Unknown]
  - Asthenia [Unknown]
  - Negative thoughts [Unknown]
  - Appetite disorder [Unknown]
  - Somnolence [Unknown]
  - Drug ineffective [Unknown]
